FAERS Safety Report 12537801 (Version 2)
Quarter: 2016Q4

REPORT INFORMATION
  Report Type: Report from Study
  Country: US (occurrence: US)
  Receive Date: 20160707
  Receipt Date: 20161003
  Transmission Date: 20170207
  Serious: Yes (Other)
  Sender: FDA-Public Use
  Company Number: US-SAOL THERAPEUTICS-2016SAO00096

PATIENT
  Age: 44 Year
  Sex: Female

DRUGS (11)
  1. BUPIVACAINE. [Suspect]
     Active Substance: BUPIVACAINE
     Dosage: 8.217 MG, UNK
     Route: 037
     Dates: start: 20160310
  2. DILAUDID [Suspect]
     Active Substance: HYDROMORPHONE HYDROCHLORIDE
     Dosage: 1.760 MG, \DAY
     Route: 037
     Dates: start: 20160310
  3. CLONIDINE. [Suspect]
     Active Substance: CLONIDINE
     Dosage: 82.17 ?G, UNK
     Route: 037
     Dates: start: 20160310
  4. COMPOUNDED BACLOFEN [Suspect]
     Active Substance: BACLOFEN
     Indication: PAIN
     Dosage: 146.72 UNK, UNK
     Route: 037
     Dates: start: 20160310
  5. CLONIDINE. [Suspect]
     Active Substance: CLONIDINE
     Dosage: 74.75 ?G, \DAY
     Route: 037
  6. MORPHINE SULFATE ER [Concomitant]
     Active Substance: MORPHINE SULFATE
  7. BUPIVACAINE. [Suspect]
     Active Substance: BUPIVACAINE
     Dosage: 7.475 MG, \DAY
     Route: 037
  8. DILAUDID [Suspect]
     Active Substance: HYDROMORPHONE HYDROCHLORIDE
     Dosage: 1.601 MG, \DAY
     Route: 037
  9. BACLOFEN. [Suspect]
     Active Substance: BACLOFEN
     Dosage: 146.72 ?G, \DAY
     Route: 037
     Dates: start: 20160310
  10. COMPOUNDED BACLOFEN [Suspect]
     Active Substance: BACLOFEN
     Indication: PAIN
     Dosage: 133.48 ?G, \DAY
     Route: 037
  11. MORPHINE SULFATE IR [Concomitant]
     Active Substance: MORPHINE SULFATE

REACTIONS (5)
  - Infusion site mass [Unknown]
  - Device leakage [Unknown]
  - Hypoaesthesia [Recovered/Resolved]
  - Intervertebral disc degeneration [Unknown]
  - Off label use [Unknown]

NARRATIVE: CASE EVENT DATE: 20151208
